APPROVED DRUG PRODUCT: CARBAMAZEPINE
Active Ingredient: CARBAMAZEPINE
Strength: 300MG
Dosage Form/Route: TABLET;ORAL
Application: A077272 | Product #003
Applicant: TORRENT PHARMACEUTICALS LTD
Approved: Dec 7, 2005 | RLD: No | RS: No | Type: DISCN